FAERS Safety Report 9674931 (Version 2)
Quarter: 2013Q4

REPORT INFORMATION
  Report Type: Report from Study
  Country: CA (occurrence: CA)
  Receive Date: 20131107
  Receipt Date: 20131107
  Transmission Date: 20140711
  Serious: Yes (Other)
  Sender: FDA-Public Use
  Company Number: CA-JNJFOC-20130312596

PATIENT
  Age: 52 Year
  Sex: Female
  Weight: 86 kg

DRUGS (9)
  1. REMICADE [Suspect]
     Indication: CROHN^S DISEASE
     Route: 042
     Dates: start: 20120505
  2. REMICADE [Suspect]
     Indication: CROHN^S DISEASE
     Route: 042
     Dates: start: 20130318, end: 20130522
  3. IMURAN [Concomitant]
     Route: 065
  4. LOSARTAN [Concomitant]
     Route: 065
  5. HCTZ [Concomitant]
     Route: 065
  6. BENADRYL [Concomitant]
     Indication: PREMEDICATION
     Route: 042
     Dates: start: 20130318
  7. GRAVOL [Concomitant]
     Indication: PREMEDICATION
     Route: 042
     Dates: start: 20130318
  8. TYLENOL [Concomitant]
     Indication: PREMEDICATION
     Route: 048
     Dates: start: 20130318
  9. AZATHIOPRINE [Concomitant]
     Route: 065

REACTIONS (5)
  - Lupus-like syndrome [Unknown]
  - Arthralgia [Recovered/Resolved]
  - Pruritus [Recovered/Resolved]
  - Infusion related reaction [Recovered/Resolved]
  - Malaise [Recovered/Resolved]
